FAERS Safety Report 4345882-7 (Version None)
Quarter: 2004Q1

REPORT INFORMATION
  Report Type: 
  Country: None (occurrence: None)
  Receive Date: 20040325
  Receipt Date: 20031204
  Transmission Date: 20041129
  Serious: No
  Sender: FDA-Public Use
  Company Number: USA031253975

PATIENT
  Age: 76 Year
  Sex: Female

DRUGS (6)
  1. FORTEO [Suspect]
     Indication: OSTEOPOROSIS
     Dosage: 20 UG/DAY
     Dates: start: 20031101
  2. SYNTHROID [Concomitant]
  3. PREMARIN [Concomitant]
  4. METOPROLOL SUCCINATE [Concomitant]
  5. ZOLOFT (SERTALINE HYDROCHORIDE) [Concomitant]
  6. CELEBREX [Concomitant]

REACTIONS (4)
  - ASTHENIA [None]
  - CONSTIPATION [None]
  - ERYTHEMA [None]
  - FLUSHING [None]
